FAERS Safety Report 4901719-6 (Version None)
Quarter: 2006Q1

REPORT INFORMATION
  Report Type: 
  Country: None (occurrence: None)
  Receive Date: 20060206
  Receipt Date: 20060123
  Transmission Date: 20060701
  Serious: Yes (Other)
  Sender: FDA-Public Use
  Company Number: FR-AVENTIS-200610317FR

PATIENT
  Age: 35 Year
  Sex: Female

DRUGS (1)
  1. KETEK [Suspect]
     Indication: TONSILLITIS
     Route: 048
     Dates: start: 20060122, end: 20060122

REACTIONS (2)
  - ACCOMMODATION DISORDER [None]
  - VISUAL ACUITY REDUCED [None]
